FAERS Safety Report 21326993 (Version 1)
Quarter: 2022Q3

REPORT INFORMATION
  Report Type: Spontaneous
  Country: US (occurrence: None)
  Receive Date: 20220912
  Receipt Date: 20220912
  Transmission Date: 20221027
  Serious: No
  Sender: FDA-Public Use
  Company Number: None

PATIENT
  Age: 58 Year
  Sex: Female

DRUGS (1)
  1. VUMERITY [Suspect]
     Active Substance: DIROXIMEL FUMARATE
     Indication: Multiple sclerosis
     Dosage: 462MG TWICE DAILY BY MOUTH
     Route: 048
     Dates: start: 20210430

REACTIONS (4)
  - Multiple sclerosis relapse [None]
  - Ocular icterus [None]
  - Yellow skin [None]
  - Chromaturia [None]

NARRATIVE: CASE EVENT DATE: 20220801
